FAERS Safety Report 5333377-3 (Version None)
Quarter: 2007Q2

REPORT INFORMATION
  Report Type: 
  Country: None (occurrence: None)
  Receive Date: 20070521
  Receipt Date: 20070504
  Transmission Date: 20071010
  Serious: Yes (Other)
  Sender: FDA-Public Use
  Company Number: DSA_61553_2007

PATIENT
  Sex: Female

DRUGS (1)
  1. DIASTAT [Suspect]
     Indication: CONVULSION
     Dosage: 7.5 MG 1X RECTAL
     Route: 054

REACTIONS (3)
  - DEVICE FAILURE [None]
  - INCORRECT DOSE ADMINISTERED [None]
  - PHARMACEUTICAL PRODUCT COMPLAINT [None]
